FAERS Safety Report 23511072 (Version 2)
Quarter: 2024Q1

REPORT INFORMATION
  Report Type: Spontaneous
  Country: US (occurrence: None)
  Receive Date: 20240212
  Receipt Date: 20240311
  Transmission Date: 20240410
  Serious: Yes (Other)
  Sender: FDA-Public Use
  Company Number: US-ROCHE-3504822

PATIENT

DRUGS (1)
  1. VABYSMO [Suspect]
     Active Substance: FARICIMAB\FARICIMAB-SVOA
     Indication: Product used for unknown indication
     Dosage: STRENGTH: 6 MG
     Route: 065

REACTIONS (2)
  - Endophthalmitis [Recovered/Resolved]
  - Suspected transmission of an infectious agent via product [Unknown]
